FAERS Safety Report 22143317 (Version 2)
Quarter: 2023Q4

REPORT INFORMATION
  Report Type: Spontaneous
  Country: US (occurrence: US)
  Receive Date: 20230327
  Receipt Date: 20231121
  Transmission Date: 20240110
  Serious: Yes (Death)
  Sender: FDA-Public Use
  Company Number: US-AMERICAN REGENT INC-2023000738

PATIENT
  Age: 35 Year
  Sex: Female

DRUGS (3)
  1. ONDANSETRON [Suspect]
     Active Substance: ONDANSETRON
     Indication: Alcohol poisoning
     Dosage: UNK
     Route: 042
  2. KETOROLAC TROMETHAMINE [Suspect]
     Active Substance: KETOROLAC TROMETHAMINE
     Indication: Alcohol poisoning
     Dosage: UNK
     Route: 042
  3. VITAMINS NOS [Concomitant]
     Active Substance: VITAMINS
     Indication: Alcohol poisoning
     Dosage: UNK
     Route: 042

REACTIONS (4)
  - Cardiac arrest [Fatal]
  - Ventricular tachycardia [Fatal]
  - Long QT syndrome [Fatal]
  - Product use in unapproved indication [Unknown]
